FAERS Safety Report 24018936 (Version 1)
Quarter: 2024Q2

REPORT INFORMATION
  Report Type: Spontaneous
  Country: US (occurrence: None)
  Receive Date: 20240626
  Receipt Date: 20240626
  Transmission Date: 20240716
  Serious: Yes (Other)
  Sender: FDA-Public Use
  Company Number: None

PATIENT
  Age: 77 Year
  Sex: Female

DRUGS (7)
  1. LENALIDOMIDE [Suspect]
     Active Substance: LENALIDOMIDE
     Indication: Plasma cell myeloma
     Dosage: FREQUENCY : DAILY;?
     Route: 048
     Dates: start: 20240301
  2. DEXAMETHASONE [Concomitant]
     Active Substance: DEXAMETHASONE
  3. CALCHICINE [Concomitant]
  4. FUROSEMIDE [Concomitant]
     Active Substance: FUROSEMIDE
  5. CARVEDILOL [Concomitant]
     Active Substance: CARVEDILOL
  6. RIVAROXABAN [Concomitant]
     Active Substance: RIVAROXABAN
  7. BUMETANIDE [Concomitant]
     Active Substance: BUMETANIDE

REACTIONS (2)
  - Peripheral swelling [None]
  - Discomfort [None]

NARRATIVE: CASE EVENT DATE: 20240625
